FAERS Safety Report 7618336-X (Version None)
Quarter: 2011Q3

REPORT INFORMATION
  Report Type: 
  Country: None (occurrence: None)
  Receive Date: 20110718
  Receipt Date: 20110705
  Transmission Date: 20111222
  Serious: Yes (Other)
  Sender: FDA-Public Use
  Company Number: NL-SANOFI-AVENTIS-2011SA042425

PATIENT
  Age: 73 Year
  Sex: Male
  Weight: 72 kg

DRUGS (8)
  1. OMEPRAZOLE [Concomitant]
  2. DRONEDARONE HCL [Suspect]
     Indication: ATRIAL FIBRILLATION
     Route: 048
     Dates: start: 20110317
  3. CARVEDILOL [Suspect]
  4. ENALAPRIL MALEATE [Concomitant]
  5. ALFUZOSIN HCL [Concomitant]
  6. FUROSEMIDE [Concomitant]
  7. PHENPROCOUMON [Concomitant]
     Dosage: 7.5 MG WEEKLY
  8. SIMVASTATIN [Suspect]

REACTIONS (1)
  - HEPATIC ENZYME INCREASED [None]
